FAERS Safety Report 4353267-2 (Version None)
Quarter: 2004Q2

REPORT INFORMATION
  Report Type: 
  Country: None (occurrence: None)
  Receive Date: 20040430
  Receipt Date: 20040422
  Transmission Date: 20050107
  Serious: Yes (Hospitalization)
  Sender: FDA-Public Use
  Company Number: CIP04000840

PATIENT
  Age: 73 Year
  Sex: Female
  Weight: 68.2 kg

DRUGS (18)
  1. ASACOL [Suspect]
     Dosage: ORAL
     Route: 048
     Dates: start: 20030101
  2. INVESTIGATIONAL DRUG [Concomitant]
  3. CALCIUM [Concomitant]
  4. VITAMIN D [Concomitant]
  5. VIOXX [Concomitant]
  6. DARVOCET-N (DEXTROPROPOXYPHENE NAPSILATE) [Concomitant]
  7. MULTIVIT (VITAMINS NOS) [Concomitant]
  8. TIMOLOL MALEATE [Concomitant]
  9. CARBACHOL (CARBACHOL) [Concomitant]
  10. AZOPT [Concomitant]
  11. ISOPTO ALKALINE (HYPROMELLOSE) [Concomitant]
  12. RESCULA ^FUJISAWA^ (UNOPROSTONE ISOPROPYL ESTER) [Concomitant]
  13. XALATAN [Concomitant]
  14. ASPIRIN [Concomitant]
  15. LOMOTIL [Concomitant]
  16. GINSENG (GINSENG) [Concomitant]
  17. GARLIC (GARLIC) [Concomitant]
  18. GLUCOSAMINE W/CHONDROITIN (CHONDROITIN SULFATE, GLUCOSAMINE) [Concomitant]

REACTIONS (27)
  - ABDOMINAL DISCOMFORT [None]
  - BAND NEUTROPHIL COUNT INCREASED [None]
  - BLOOD BILIRUBIN INCREASED [None]
  - BLOOD CHLORIDE INCREASED [None]
  - BLOOD GLUCOSE DECREASED [None]
  - BLOOD LACTATE DEHYDROGENASE INCREASED [None]
  - BLOOD UREA DECREASED [None]
  - BODY TEMPERATURE INCREASED [None]
  - CLOSTRIDIUM COLITIS [None]
  - COLITIS COLLAGENOUS [None]
  - DEHYDRATION [None]
  - DIARRHOEA [None]
  - DIVERTICULUM INTESTINAL [None]
  - DUODENAL ULCER [None]
  - GASTROENTERITIS NONINFECTIOUS [None]
  - GASTROINTESTINAL MUCOSAL DISORDER [None]
  - GASTROINTESTINAL TRACT MUCOSAL DISCOLOURATION [None]
  - HAEMATOCRIT DECREASED [None]
  - HAEMOGLOBIN DECREASED [None]
  - MEAN PLATELET VOLUME DECREASED [None]
  - NAUSEA [None]
  - PCO2 DECREASED [None]
  - PLATELET COUNT INCREASED [None]
  - RED BLOOD CELL COUNT DECREASED [None]
  - VOMITING [None]
  - WHITE BLOOD CELL COUNT INCREASED [None]
  - WHITE BLOOD CELLS STOOL POSITIVE [None]
